FAERS Safety Report 20718843 (Version 4)
Quarter: 2022Q4

REPORT INFORMATION
  Report Type: Report from Study
  Country: FR (occurrence: None)
  Receive Date: 20220418
  Receipt Date: 20221228
  Transmission Date: 20230113
  Serious: Yes (Hospitalization)
  Sender: FDA-Public Use
  Company Number: FR-ROCHE-3068920

PATIENT
  Age: 73 Year
  Sex: Male
  Weight: 68 kg

DRUGS (5)
  1. GLOFITAMAB [Suspect]
     Active Substance: GLOFITAMAB
     Indication: Lymphoma
     Dosage: MOST RECENT DOSE OF  GLOFITAMAB PROR TO AE ON  14/MAR/2022 D1C5??ON 26/APR/2022 GLOFITAMAB WAS REINT
     Route: 042
     Dates: start: 20211227
  2. OBINUTUZUMAB [Suspect]
     Active Substance: OBINUTUZUMAB
     Indication: Lymphoma
     Dosage: MOST RECENT DOSE OF  OBINUTUZUMAB PRIOR TO AE ON 24/DEC/2021
     Route: 042
     Dates: start: 20211224
  3. SULFAMETHOXAZOLE [Concomitant]
     Active Substance: SULFAMETHOXAZOLE
     Indication: Antibiotic prophylaxis
     Dosage: 1 CP
  4. VALACYCLOVIR HYDROCHLORIDE [Concomitant]
     Active Substance: VALACYCLOVIR HYDROCHLORIDE
     Indication: Antiviral prophylaxis
     Dosage: 1000
  5. TRAMADOL [Concomitant]
     Active Substance: TRAMADOL

REACTIONS (3)
  - Lung disorder [Not Recovered/Not Resolved]
  - COVID-19 [Recovered/Resolved]
  - Tumour flare [Recovered/Resolved]

NARRATIVE: CASE EVENT DATE: 20211229
